FAERS Safety Report 6326516-9 (Version None)
Quarter: 2009Q3

REPORT INFORMATION
  Report Type: 
  Country: None (occurrence: None)
  Receive Date: 20090821
  Receipt Date: 20090811
  Transmission Date: 20100115
  Serious: Yes (Other)
  Sender: FDA-Public Use
  Company Number: JPI-P-008287

PATIENT
  Age: 44 Year
  Sex: Female

DRUGS (10)
  1. FLUVOXAMINE MALEATE [Suspect]
     Indication: DRUG USE FOR UNKNOWN INDICATION
     Dosage: 50 MG, 1 D, ORAL
     Route: 048
  2. LOXOPROFEN SODIUM [Concomitant]
  3. HYDROXYCOBALAMIN ACETATE [Concomitant]
  4. ALDIOXA [Concomitant]
  5. FLUNITRAZEPAM [Concomitant]
  6. PHENOBARBITAL, PROMETHAZINE AND CHLORPROMAZINE [Concomitant]
  7. RISPERIDONE [Concomitant]
  8. VALPROATE SODIUM [Concomitant]
  9. LORAZEPAM [Concomitant]
  10. CLONAZEPAM [Concomitant]

REACTIONS (1)
  - THROMBOSIS [None]
